FAERS Safety Report 16483327 (Version 3)
Quarter: 2019Q3

REPORT INFORMATION
  Report Type: Spontaneous
  Country: US (occurrence: US)
  Receive Date: 20190627
  Receipt Date: 20190819
  Transmission Date: 20191004
  Serious: No
  Sender: FDA-Public Use
  Company Number: US-BRISTOL-MYERS SQUIBB COMPANY-BMS-2019-062181

PATIENT
  Sex: Female

DRUGS (5)
  1. TUMS PLUS [Concomitant]
     Indication: PRODUCT USED FOR UNKNOWN INDICATION
     Route: 065
  2. FERROUS GLUCONATE [Concomitant]
     Active Substance: FERROUS GLUCONATE
     Indication: PRODUCT USED FOR UNKNOWN INDICATION
     Dosage: UNK
     Route: 065
  3. MICRO-K [Concomitant]
     Active Substance: POTASSIUM CHLORIDE
     Indication: PRODUCT USED FOR UNKNOWN INDICATION
     Route: 065
  4. PROAIR HFA [Concomitant]
     Active Substance: ALBUTEROL SULFATE
     Indication: PRODUCT USED FOR UNKNOWN INDICATION
     Route: 065
  5. SPRYCEL [Suspect]
     Active Substance: DASATINIB
     Indication: CHRONIC MYELOID LEUKAEMIA
     Dosage: 100 MILLIGRAM, DAILY
     Route: 048
     Dates: start: 20181031

REACTIONS (13)
  - Emotional disorder [Unknown]
  - Muscle spasms [Unknown]
  - Increased viscosity of bronchial secretion [Unknown]
  - Taste disorder [Unknown]
  - Cough [Unknown]
  - Pain in extremity [Unknown]
  - Crying [Unknown]
  - Agitation [Unknown]
  - Blood potassium decreased [Unknown]
  - Asthenia [Unknown]
  - Blood iron decreased [Unknown]
  - Irritability [Unknown]
  - Headache [Unknown]
